FAERS Safety Report 5961034-9 (Version None)
Quarter: 2008Q4

REPORT INFORMATION
  Report Type: 
  Country: None (occurrence: None)
  Receive Date: 20081121
  Receipt Date: 20080813
  Transmission Date: 20090506
  Serious: No
  Sender: FDA-Public Use
  Company Number: A0742442A

PATIENT
  Age: 86 Year
  Sex: Female

DRUGS (10)
  1. LANOXIN [Suspect]
     Dosage: .125MG PER DAY
     Route: 048
     Dates: start: 20080501
  2. DIGITEK [Suspect]
     Dosage: .125MG PER DAY
     Route: 065
     Dates: end: 20080401
  3. LIPITOR [Concomitant]
  4. CARDIZEM [Concomitant]
  5. SEMARA [Concomitant]
  6. ACULAR [Concomitant]
  7. ZETIA [Concomitant]
  8. FOSINOPRIL SODIUM [Concomitant]
  9. ADVAIR DISKUS 100/50 [Concomitant]
  10. ALBUTEROL [Concomitant]

REACTIONS (1)
  - ALOPECIA [None]
